FAERS Safety Report 22615147 (Version 1)
Quarter: 2023Q2

REPORT INFORMATION
  Report Type: Spontaneous
  Country: US (occurrence: US)
  Receive Date: 20230619
  Receipt Date: 20230619
  Transmission Date: 20230721
  Serious: Yes (Other)
  Sender: FDA-Public Use
  Company Number: US-LEADINGPHARMA-US-2023LEALIT00157

PATIENT
  Age: 65 Year
  Sex: Female

DRUGS (3)
  1. LIDOCAINE [Suspect]
     Active Substance: LIDOCAINE
     Indication: Cataract operation
     Dosage: 5 ML OF LIDOCAINE 2%
     Route: 065
  2. BUPIVACAINE [Suspect]
     Active Substance: BUPIVACAINE
     Indication: Cataract operation
     Dosage: 5 ML OF BUPIVACAINE 0.75%
     Route: 065
  3. HYALURONIDASE [Suspect]
     Active Substance: HYALURONIDASE
     Indication: Cataract operation
     Route: 065

REACTIONS (2)
  - Purtscher retinopathy [Recovered/Resolved]
  - Product use issue [Unknown]
